FAERS Safety Report 11878022 (Version 1)
Quarter: 2015Q4

REPORT INFORMATION
  Report Type: Spontaneous
  Country: US (occurrence: US)
  Receive Date: 20151230
  Receipt Date: 20151230
  Transmission Date: 20160305
  Serious: No
  Sender: FDA-Public Use
  Company Number: US-ASTRAZENECA-2015SF26938

PATIENT
  Age: 21854 Day
  Sex: Female
  Weight: 72.6 kg

DRUGS (4)
  1. NIACIN. [Concomitant]
     Active Substance: NIACIN
     Indication: LIVER DISORDER
     Dosage: AT NIGHT
     Route: 048
  2. NIACIN. [Concomitant]
     Active Substance: NIACIN
     Indication: PANCREATIC DISORDER
     Dosage: AT NIGHT
     Route: 048
  3. PULMICORT FLEXHALER [Suspect]
     Active Substance: BUDESONIDE
     Indication: ASTHMA
     Dosage: TWO PUFFS TWO TIMES A DAY
     Route: 055
     Dates: start: 20140613, end: 20151211
  4. NIACIN. [Concomitant]
     Active Substance: NIACIN
     Indication: CHEST PAIN
     Dosage: AT NIGHT
     Route: 048

REACTIONS (6)
  - Proctalgia [Not Recovered/Not Resolved]
  - Drug hypersensitivity [Not Recovered/Not Resolved]
  - Rectal haemorrhage [Not Recovered/Not Resolved]
  - Anal fissure [Not Recovered/Not Resolved]
  - Malaise [Not Recovered/Not Resolved]
  - Candida infection [Unknown]
